FAERS Safety Report 6475831-7 (Version None)
Quarter: 2009Q4

REPORT INFORMATION
  Report Type: 
  Country: None (occurrence: None)
  Receive Date: 20091204
  Receipt Date: 20090106
  Transmission Date: 20100525
  Serious: No
  Sender: FDA-Public Use
  Company Number: US-AMGEN-KDL327117

PATIENT
  Sex: Female

DRUGS (10)
  1. ENBREL [Suspect]
     Indication: RHEUMATOID ARTHRITIS
  2. KINERET [Suspect]
     Indication: RHEUMATOID ARTHRITIS
     Dates: start: 20080101
  3. METHOTREXATE [Concomitant]
  4. ARAVA [Concomitant]
  5. PLAQUENIL [Concomitant]
  6. SULFASALAZINE [Concomitant]
  7. ORENCIA [Concomitant]
  8. HUMIRA [Concomitant]
  9. MOBIC [Concomitant]
  10. XANAX [Concomitant]

REACTIONS (4)
  - DRUG EFFECT DECREASED [None]
  - FATIGUE [None]
  - JOINT SWELLING [None]
  - URTICARIA [None]
